FAERS Safety Report 5527751-X (Version None)
Quarter: 2007Q4

REPORT INFORMATION
  Report Type: 
  Country: None (occurrence: None)
  Receive Date: 20071128
  Receipt Date: 20071119
  Transmission Date: 20080405
  Serious: Yes (Hospitalization)
  Sender: FDA-Public Use
  Company Number: FR-JNJFOC-20071106868

PATIENT
  Sex: Male

DRUGS (3)
  1. MOTILIUM [Suspect]
     Indication: GASTROENTERITIS
     Route: 048
     Dates: start: 20070924, end: 20070928
  2. IMODIUM [Suspect]
     Indication: GASTROENTERITIS
     Route: 048
     Dates: start: 20070924, end: 20070928
  3. ALUMINUM HYDROXIDE AND MAGNESIUM TRISILICATE [Suspect]
     Indication: GASTROENTERITIS
     Route: 048
     Dates: start: 20070924, end: 20070928

REACTIONS (1)
  - HEPATITIS [None]
